FAERS Safety Report 9056581 (Version 3)
Quarter: 2015Q4

REPORT INFORMATION
  Report Type: Spontaneous
  Country: US (occurrence: US)
  Receive Date: 20130204
  Receipt Date: 20151119
  Transmission Date: 20160305
  Serious: No
  Sender: FDA-Public Use
  Company Number: US-ASTRAZENECA-2011SE55848

PATIENT
  Age: 58 Year
  Sex: Female

DRUGS (4)
  1. CRESTOR [Suspect]
     Active Substance: ROSUVASTATIN CALCIUM
     Indication: BLOOD CHOLESTEROL ABNORMAL
     Dosage: CUT 40 MG PILL IN HALF, GENERIC DRUG
     Route: 048
  2. CRESTOR [Suspect]
     Active Substance: ROSUVASTATIN CALCIUM
     Indication: BLOOD CHOLESTEROL ABNORMAL
     Dosage: GENERIC DRUG
     Route: 048
  3. NEXIUM [Suspect]
     Active Substance: ESOMEPRAZOLE MAGNESIUM
     Indication: GASTRITIS
     Route: 048
  4. NEXIUM [Suspect]
     Active Substance: ESOMEPRAZOLE MAGNESIUM
     Indication: HIATUS HERNIA
     Route: 048

REACTIONS (10)
  - Osteopenia [Unknown]
  - Weight decreased [Unknown]
  - Gastric disorder [Unknown]
  - Intentional product misuse [Unknown]
  - Diabetes mellitus [Unknown]
  - Dyspepsia [Unknown]
  - Nausea [Unknown]
  - Cardiac disorder [Unknown]
  - Drug ineffective [Unknown]
  - Barrett^s oesophagus [Unknown]
